FAERS Safety Report 6858819-3 (Version None)
Quarter: 2010Q3

REPORT INFORMATION
  Report Type: 
  Country: None (occurrence: None)
  Receive Date: 20100719
  Receipt Date: 20080320
  Transmission Date: 20110219
  Serious: No
  Sender: FDA-Public Use
  Company Number: US-PFIZER INC-2008015803

PATIENT
  Sex: Female
  Weight: 79.8 kg

DRUGS (11)
  1. CHANTIX [Suspect]
     Indication: SMOKING CESSATION THERAPY
     Dosage: 0.5MG TO 1 MG
     Route: 048
     Dates: start: 20080201
  2. ANTIHYPERTENSIVES [Concomitant]
  3. ANTI-DIABETICS [Concomitant]
  4. ENALAPRIL MALEATE [Concomitant]
  5. METOPROLOL [Concomitant]
  6. ACETYLSALICYLIC ACID [Concomitant]
  7. LISINOPRIL [Concomitant]
  8. DOXAZOSIN [Concomitant]
  9. ALLEGRA [Concomitant]
  10. ALBUTEROL [Concomitant]
     Route: 055
  11. RANITIDINE [Concomitant]

REACTIONS (6)
  - DRUG INEFFECTIVE [None]
  - EPISTAXIS [None]
  - SEDATION [None]
  - SINUSITIS [None]
  - SOMNOLENCE [None]
  - UPPER RESPIRATORY TRACT INFECTION [None]
